FAERS Safety Report 9043362 (Version 1)
Quarter: 2013Q1

REPORT INFORMATION
  Report Type: Report from Study
  Country: US (occurrence: US)
  Receive Date: 20130129
  Receipt Date: 20130129
  Transmission Date: 20140127
  Serious: No
  Sender: FDA-Public Use
  Company Number: US-ABBOTT-12P-163-0914316-00

PATIENT
  Age: 59 Year
  Sex: Female

DRUGS (11)
  1. HUMIRA 40 MG/0.8 ML PEN [Suspect]
     Indication: PSORIATIC ARTHROPATHY
     Dates: start: 20111124
  2. CYMBALTA [Concomitant]
     Indication: PRODUCT USED FOR UNKNOWN INDICATION
     Dosage: 30 MG DAILY
  3. GABAPENTIN [Concomitant]
     Indication: PRODUCT USED FOR UNKNOWN INDICATION
     Dosage: 300 MG, 2 TABLETS AT NOON AND 3 TABLETS AT BEDTIME
  4. METFORMIN [Concomitant]
     Indication: DIABETES MELLITUS
     Dosage: 500 MG DAILY
  5. GLYBURIDE [Concomitant]
     Indication: DIABETES MELLITUS
  6. FOLIC ACID [Concomitant]
     Indication: PRODUCT USED FOR UNKNOWN INDICATION
  7. PREDNISONE [Concomitant]
     Indication: PRODUCT USED FOR UNKNOWN INDICATION
     Dosage: 7.5 MG DAILY
  8. OMEPRAZOLE [Concomitant]
     Indication: PRODUCT USED FOR UNKNOWN INDICATION
     Dosage: 20 MG X 2 TABLETS AT BEDTIME
  9. FENTANYL [Concomitant]
     Indication: PRODUCT USED FOR UNKNOWN INDICATION
  10. CARISOPRODOL [Concomitant]
     Indication: PRODUCT USED FOR UNKNOWN INDICATION
  11. LOSARTAN POTASSIUM [Concomitant]
     Indication: PRODUCT USED FOR UNKNOWN INDICATION
     Dosage: 100 MG DAILY

REACTIONS (3)
  - Injection site pain [Recovering/Resolving]
  - Injection site bruising [Recovering/Resolving]
  - Kidney infection [Recovered/Resolved]
